FAERS Safety Report 7273107-1 (Version None)
Quarter: 2011Q1

REPORT INFORMATION
  Report Type: 
  Country: None (occurrence: None)
  Receive Date: 20110203
  Receipt Date: 20110127
  Transmission Date: 20110831
  Serious: Yes (Other)
  Sender: FDA-Public Use
  Company Number: CHPA2010DE19411

PATIENT
  Sex: Female
  Weight: 59.864 kg

DRUGS (2)
  1. NICOTINELL TTS 30 [Suspect]
     Indication: SMOKING CESSATION THERAPY
     Dosage: 21 MG, QD
     Route: 062
     Dates: start: 20101212, end: 20101221
  2. JASMINE [Concomitant]
     Dosage: 0.02MG/3MG TABLET FOR MANY YEARS

REACTIONS (3)
  - WITHDRAWAL SYNDROME [None]
  - INSOMNIA [None]
  - DYSPNOEA [None]
